FAERS Safety Report 23423651 (Version 1)
Quarter: 2024Q1

REPORT INFORMATION
  Report Type: Report from Study
  Country: CN (occurrence: CN)
  Receive Date: 20240119
  Receipt Date: 20240119
  Transmission Date: 20240410
  Serious: Yes (Other)
  Sender: FDA-Public Use
  Company Number: CN-FOSUNKITE-FOSUNKITE-20240026

PATIENT
  Age: 59 Year
  Sex: Female

DRUGS (3)
  1. AXICABTAGENE CILOLEUCEL [Suspect]
     Active Substance: AXICABTAGENE CILOLEUCEL
     Indication: Non-Hodgkin^s lymphoma
     Dosage: 1.2?10^8 (NUMBER OF CAR-T CELLS).
     Route: 042
     Dates: start: 20230807, end: 20230807
  2. FLUDARABINE [Suspect]
     Active Substance: FLUDARABINE PHOSPHATE
     Indication: Lymphodepletion
     Dosage: 49 MG
     Route: 041
     Dates: start: 20230804, end: 20230804
  3. CYCLOPHOSPHAMIDE [Suspect]
     Active Substance: CYCLOPHOSPHAMIDE
     Indication: Lymphodepletion
     Dosage: 0.82 G
     Route: 041
     Dates: start: 20230804, end: 20230804

REACTIONS (7)
  - Hypokalaemia [Recovered/Resolved]
  - Hyponatraemia [Not Recovered/Not Resolved]
  - International normalised ratio increased [Recovered/Resolved]
  - Anaemia [Recovered/Resolved]
  - Blood fibrinogen decreased [Not Recovered/Not Resolved]
  - Blood bilirubin increased [Recovered/Resolved]
  - Blood creatinine increased [Not Recovered/Not Resolved]

NARRATIVE: CASE EVENT DATE: 20230814
